FAERS Safety Report 23178490 (Version 1)
Quarter: 2023Q4

REPORT INFORMATION
  Report Type: Spontaneous
  Country: FR (occurrence: FR)
  Receive Date: 20231113
  Receipt Date: 20231113
  Transmission Date: 20240109
  Serious: Yes (Hospitalization)
  Sender: FDA-Public Use
  Company Number: None

PATIENT
  Age: 78 Year
  Sex: Female
  Weight: 71 kg

DRUGS (7)
  1. PANTOPRAZOLE [Suspect]
     Active Substance: PANTOPRAZOLE
     Indication: Intestinal resection
     Dosage: 4G 40-0-40
     Route: 065
     Dates: start: 20230913, end: 20230915
  2. PANTOPRAZOLE [Suspect]
     Active Substance: PANTOPRAZOLE
     Dosage: 40-0-40 , FREQUENCY TIME -12 HOURS, DURATION -7 DAYS,UNIT DOSE -40 MG
     Route: 065
     Dates: start: 20230915, end: 20230922
  3. PIPERACILLIN SODIUM\TAZOBACTAM SODIUM [Suspect]
     Active Substance: PIPERACILLIN SODIUM\TAZOBACTAM SODIUM
     Indication: Intestinal resection
     Dosage: 4G / 0.5G EVERY 6H
     Dates: start: 20230915, end: 20230921
  4. BACTRIM [Suspect]
     Active Substance: SULFAMETHOXAZOLE\TRIMETHOPRIM
     Indication: Intestinal resection
     Dosage: 400MG / 80MG 1-0-1
     Route: 065
     Dates: start: 20230913, end: 20230921
  5. FUROSEMIDE [Concomitant]
     Active Substance: FUROSEMIDE
     Indication: Hypertension
  6. BENSERAZIDE HYDROCHLORIDE\LEVODOPA [Concomitant]
     Active Substance: BENSERAZIDE HYDROCHLORIDE\LEVODOPA
     Indication: Parkinsonism
  7. LOVENOX [Concomitant]
     Active Substance: ENOXAPARIN SODIUM
     Indication: Thrombosis prophylaxis
     Dosage: LOVENOX 4,000 IU ANTI-XA/0.4 ML, SOLUTION FOR INJECTION IN CARTRIDGE
     Dates: start: 20230915

REACTIONS (1)
  - Neutropenia [Recovered/Resolved]

NARRATIVE: CASE EVENT DATE: 20230922
